FAERS Safety Report 16607729 (Version 1)
Quarter: 2019Q3

REPORT INFORMATION
  Report Type: Spontaneous
  Country: CA (occurrence: CA)
  Receive Date: 20190722
  Receipt Date: 20190722
  Transmission Date: 20191004
  Serious: Yes (Death, Other)
  Sender: FDA-Public Use
  Company Number: CA-TEVA-2019-CA-1079049

PATIENT
  Age: 34 Year
  Sex: Male

DRUGS (2)
  1. METHAMPHETAMINE [Suspect]
     Active Substance: METHAMPHETAMINE
     Indication: PRODUCT USED FOR UNKNOWN INDICATION
     Route: 065
  2. OXYCODONE HYDROCHLORIDE. [Suspect]
     Active Substance: OXYCODONE HYDROCHLORIDE
     Indication: PRODUCT USED FOR UNKNOWN INDICATION
     Route: 065

REACTIONS (11)
  - Pallor [Fatal]
  - Unresponsive to stimuli [Fatal]
  - Aggression [Fatal]
  - Delirium [Fatal]
  - Euphoric mood [Fatal]
  - Hyperhidrosis [Fatal]
  - Poisoning [Fatal]
  - Toxicity to various agents [Fatal]
  - Dyspnoea [Fatal]
  - Respiratory failure [Fatal]
  - Emotional distress [Fatal]
